FAERS Safety Report 8556028 (Version 3)
Quarter: 2012Q4

REPORT INFORMATION
  Report Type: 
  Country: US (occurrence: US)
  Receive Date: 20120510
  Receipt Date: 20121023
  Transmission Date: 20130627
  Serious: Yes (Hospitalization)
  Sender: FDA-Public Use
  Company Number: US-BAYER-2012-044615

PATIENT
  Age: 19 Year
  Sex: Female
  Weight: 45.9 kg

DRUGS (5)
  1. YAZ [Suspect]
     Dosage: UNK
     Dates: start: 201008, end: 201009
  2. LEXAPRO [Concomitant]
     Indication: DEPRESSION
     Dosage: 20 mg every morning
  3. PRILOSEC [Concomitant]
     Dosage: 40 mg,every morning
  4. EXCEDRINE [Concomitant]
     Indication: HEADACHE
     Dosage: One as needed
  5. ONE A DAY TEEN ADVANTAGE [Concomitant]
     Indication: VITAMIN SUPPLEMENTATION
     Dosage: one a day

REACTIONS (11)
  - Thrombotic stroke [None]
  - Pain [None]
  - Injury [None]
  - General physical health deterioration [None]
  - Hemiparesis [None]
  - Memory impairment [None]
  - Migraine [None]
  - Emotional distress [None]
  - Anxiety [None]
  - Anhedonia [None]
  - Pain [None]
